FAERS Safety Report 21848809 (Version 1)
Quarter: 2023Q1

REPORT INFORMATION
  Report Type: Spontaneous
  Country: US (occurrence: US)
  Receive Date: 20230111
  Receipt Date: 20230111
  Transmission Date: 20230417
  Serious: No
  Sender: FDA-Public Use
  Company Number: US-BAYER-2023P001510

PATIENT
  Age: 68 Year
  Sex: Male

DRUGS (4)
  1. MOXIFLOXACIN [Suspect]
     Active Substance: MOXIFLOXACIN
     Indication: Mycobacterial infection
     Route: 048
  2. LINEZOLID [Concomitant]
     Active Substance: LINEZOLID
  3. ETHAMBUTOL [Concomitant]
     Active Substance: ETHAMBUTOL HYDROCHLORIDE
  4. RIFABUTIN [Concomitant]
     Active Substance: RIFABUTIN

REACTIONS (2)
  - Off label use [None]
  - Drug ineffective for unapproved indication [None]
